FAERS Safety Report 9821336 (Version 1)
Quarter: 2014Q1

REPORT INFORMATION
  Report Type: Spontaneous
  Country: US (occurrence: None)
  Receive Date: 20140115
  Receipt Date: 20140115
  Transmission Date: 20141002
  Serious: Yes (Life-Threatening, Disabling, Other)
  Sender: FDA-Public Use
  Company Number: None

PATIENT
  Age: 54 Year
  Sex: Female
  Weight: 57.61 kg

DRUGS (3)
  1. BENZODIAZEPINE [Suspect]
     Dates: start: 20130227
  2. LORAZEPAM [Suspect]
  3. CLONAZEPAM [Suspect]

REACTIONS (8)
  - Influenza [None]
  - Gallbladder disorder [None]
  - Nausea [None]
  - Pain [None]
  - Decreased appetite [None]
  - Drug tolerance [None]
  - Weight decreased [None]
  - Drug withdrawal syndrome [None]
